FAERS Safety Report 15532037 (Version 4)
Quarter: 2019Q4

REPORT INFORMATION
  Report Type: Report from Study
  Country: AR (occurrence: AR)
  Receive Date: 20181019
  Receipt Date: 20191118
  Transmission Date: 20200122
  Serious: Yes (Other)
  Sender: FDA-Public Use
  Company Number: AR-ROCHE-2201278

PATIENT
  Sex: Male

DRUGS (4)
  1. XOLAIR [Suspect]
     Active Substance: OMALIZUMAB
     Route: 065
  2. XOLAIR [Suspect]
     Active Substance: OMALIZUMAB
     Route: 065
     Dates: end: 20190701
  3. AMOXICILLIN;CLAVULANATE POTASSIUM [Suspect]
     Active Substance: AMOXICILLIN\CLAVULANATE POTASSIUM
     Indication: PRODUCT USED FOR UNKNOWN INDICATION
     Route: 065
  4. XOLAIR [Suspect]
     Active Substance: OMALIZUMAB
     Indication: ASTHMA
     Dosage: (600 MG, QMO)
     Route: 065
     Dates: start: 20160929

REACTIONS (14)
  - Wheezing [Not Recovered/Not Resolved]
  - Dyspnoea [Recovered/Resolved]
  - Fear [Unknown]
  - Vomiting [Unknown]
  - Asthma [Not Recovered/Not Resolved]
  - Dyspepsia [Unknown]
  - Diarrhoea haemorrhagic [Unknown]
  - Hypersensitivity [Not Recovered/Not Resolved]
  - Malaise [Not Recovered/Not Resolved]
  - Asthenia [Not Recovered/Not Resolved]
  - Bronchitis [Not Recovered/Not Resolved]
  - Rhinorrhoea [Recovered/Resolved]
  - Syncope [Unknown]
  - Respiratory tract congestion [Not Recovered/Not Resolved]

NARRATIVE: CASE EVENT DATE: 2018
